FAERS Safety Report 4704575-4 (Version None)
Quarter: 2005Q2

REPORT INFORMATION
  Report Type: 
  Country: None (occurrence: None)
  Receive Date: 20050629
  Receipt Date: 20050613
  Transmission Date: 20051028
  Serious: Yes (Hospitalization)
  Sender: FDA-Public Use
  Company Number: 2005JP001224

PATIENT
  Age: 38 Year
  Sex: Male

DRUGS (4)
  1. PROGRAF [Suspect]
     Indication: RENAL TRANSPLANT
     Dosage: 1.00 MG, BID; ORAL
     Route: 048
     Dates: start: 20021230
  2. MYCOPHENOLATE MOFETIL [Concomitant]
  3. GLIMEPIRIDE [Concomitant]
  4. LERCANIDIPINE HYDROCHLORIDE [Concomitant]

REACTIONS (2)
  - ASCITES [None]
  - HEPATIC CIRRHOSIS [None]
